FAERS Safety Report 18048597 (Version 1)
Quarter: 2020Q3

REPORT INFORMATION
  Report Type: Spontaneous
  Country: US (occurrence: US)
  Receive Date: 20200720
  Receipt Date: 20200720
  Transmission Date: 20201103
  Serious: Yes (Hospitalization)
  Sender: FDA-Public Use
  Company Number: None

PATIENT
  Age: 46 Year
  Sex: Male

DRUGS (1)
  1. ZOLINZA [Suspect]
     Active Substance: VORINOSTAT
     Indication: MALIGNANT MEDIASTINAL NEOPLASM
     Route: 048
     Dates: start: 202005

REACTIONS (2)
  - Product administration error [None]
  - Product packaging quantity issue [None]

NARRATIVE: CASE EVENT DATE: 20200708
